FAERS Safety Report 15097271 (Version 2)
Quarter: 2018Q3

REPORT INFORMATION
  Report Type: Spontaneous
  Country: US (occurrence: US)
  Receive Date: 20180702
  Receipt Date: 20180703
  Transmission Date: 20181010
  Serious: No
  Sender: FDA-Public Use
  Company Number: US-SA-2018SA120094

PATIENT
  Age: 54 Year
  Sex: Female
  Weight: 77.11 kg

DRUGS (1)
  1. LANTUS SOLOSTAR [Suspect]
     Active Substance: INSULIN GLARGINE
     Indication: TYPE 2 DIABETES MELLITUS
     Dosage: 12 IU,QD
     Route: 058
     Dates: start: 201708, end: 20180422

REACTIONS (5)
  - Incorrect dose administered by device [Unknown]
  - Hypoglycaemia [Unknown]
  - Fear [Unknown]
  - Product physical consistency issue [Unknown]
  - Nervousness [Unknown]

NARRATIVE: CASE EVENT DATE: 2018
